FAERS Safety Report 8608330-4 (Version None)
Quarter: 2012Q3

REPORT INFORMATION
  Report Type: 
  Country: None (occurrence: None)
  Receive Date: 20120821
  Receipt Date: 20120816
  Transmission Date: 20120928
  Serious: Yes (Hospitalization)
  Sender: FDA-Public Use
  Company Number: US-AMGEN-USASP2012052055

PATIENT
  Age: 62 Year
  Sex: Male

DRUGS (3)
  1. SULFASALAZINE [Concomitant]
  2. METHOTREXATE [Concomitant]
  3. ENBREL [Suspect]
     Indication: RHEUMATOID ARTHRITIS
     Dosage: UNK

REACTIONS (2)
  - VIITH NERVE PARALYSIS [None]
  - GUILLAIN-BARRE SYNDROME [None]
